FAERS Safety Report 14583152 (Version 1)
Quarter: 2018Q1

REPORT INFORMATION
  Report Type: Spontaneous
  Country: JP (occurrence: JP)
  Receive Date: 20180228
  Receipt Date: 20180228
  Transmission Date: 20180509
  Serious: Yes (Hospitalization, Other)
  Sender: FDA-Public Use
  Company Number: JP-BAYER-2017-220402

PATIENT
  Age: 79 Year
  Sex: Male
  Weight: 47 kg

DRUGS (16)
  1. CALCIUM LACTATE [Concomitant]
     Active Substance: CALCIUM LACTATE
     Indication: OSTEOPOROSIS
     Dosage: DAILY DOSE 9 G
     Route: 048
     Dates: start: 20170412
  2. MAGMITT [Concomitant]
     Active Substance: MAGNESIUM OXIDE
     Indication: CONSTIPATION
     Dosage: DAILY DOSE 9 T
     Route: 048
     Dates: start: 20170823
  3. ZYTIGA [Concomitant]
     Active Substance: ABIRATERONE ACETATE
     Indication: PROSTATE CANCER
     Dosage: DAILY DOSE 4 T
     Route: 048
     Dates: start: 20170712, end: 20170926
  4. ZYTIGA [Concomitant]
     Active Substance: ABIRATERONE ACETATE
     Indication: PROSTATE CANCER
     Dosage: DAILY DOSE 3 T
     Route: 048
     Dates: start: 20171122, end: 20171128
  5. CASODEX [Concomitant]
     Active Substance: BICALUTAMIDE
     Dosage: UNK
     Route: 048
     Dates: start: 20171225
  6. XOFIGO [Suspect]
     Active Substance: RADIUM RA-223 DICHLORIDE
     Indication: HORMONE-REFRACTORY PROSTATE CANCER
     Dosage: 55KBQ/KG, Q1MON
     Route: 042
     Dates: start: 20170927
  7. NEXIUM [Concomitant]
     Active Substance: ESOMEPRAZOLE MAGNESIUM
     Dosage: DAILY DOSE 1 DF
     Route: 048
     Dates: start: 20170713
  8. EDIROL [Concomitant]
     Active Substance: ELDECALCITOL
     Indication: OSTEOPOROSIS
     Dosage: DAILY DOSE 1 DF
     Route: 048
     Dates: start: 20170411
  9. PREDONINE [Concomitant]
     Active Substance: PREDNISOLONE
     Dosage: DAILY DOSE 1 T
     Route: 048
     Dates: start: 20170713, end: 20171225
  10. XOFIGO [Suspect]
     Active Substance: RADIUM RA-223 DICHLORIDE
     Indication: HORMONE-REFRACTORY PROSTATE CANCER
     Dosage: 55KBQ/KG, Q1MON
     Route: 042
  11. ZYTIGA [Concomitant]
     Active Substance: ABIRATERONE ACETATE
     Indication: PROSTATE CANCER
     Dosage: DAILY DOSE 3 T
     Route: 048
     Dates: start: 20170713, end: 20170927
  12. CASODEX [Concomitant]
     Active Substance: BICALUTAMIDE
     Dosage: DAILY DOSE 1 T
     Route: 048
     Dates: start: 20170214, end: 20170711
  13. TENELIA [Concomitant]
     Active Substance: TENELIGLIPTIN
     Indication: TYPE 2 DIABETES MELLITUS
     Dosage: DAILY DOSE 20 MG
     Route: 048
     Dates: start: 20170713, end: 20180105
  14. CASODEX [Concomitant]
     Active Substance: BICALUTAMIDE
     Dosage: DAILY DOSE 1 T
     Route: 048
     Dates: start: 20160401, end: 20160830
  15. XOFIGO [Suspect]
     Active Substance: RADIUM RA-223 DICHLORIDE
     Indication: METASTASES TO BONE
     Dosage: 55KBQ/KG, Q1MON
     Route: 042
     Dates: start: 20171129
  16. URSO [Concomitant]
     Active Substance: URSODIOL
     Indication: HEPATIC FUNCTION ABNORMAL
     Dosage: DAILY DOSE 9 T
     Route: 048
     Dates: start: 20170823

REACTIONS (4)
  - Pneumonia [None]
  - Metastases to liver [Unknown]
  - Malignant neoplasm progression [None]
  - Prostatic specific antigen increased [Recovering/Resolving]

NARRATIVE: CASE EVENT DATE: 201712
